FAERS Safety Report 9128758 (Version 2)
Quarter: 2013Q2

REPORT INFORMATION
  Report Type: Spontaneous
  Country: US (occurrence: US)
  Receive Date: 20130228
  Receipt Date: 20130528
  Transmission Date: 20140414
  Serious: No
  Sender: FDA-Public Use
  Company Number: US-ABBOTT-12P-163-1009740-00

PATIENT
  Sex: Male
  Weight: 73 kg

DRUGS (1)
  1. ANDROGEL [Suspect]
     Indication: HYPOGONADISM
     Dosage: 1 PACK DAILY
     Dates: start: 20120301, end: 20121030

REACTIONS (1)
  - Gynaecomastia [Recovered/Resolved]
